FAERS Safety Report 22278731 (Version 1)
Quarter: 2023Q2

REPORT INFORMATION
  Report Type: Report from Study
  Country: US (occurrence: US)
  Receive Date: 20230503
  Receipt Date: 20230503
  Transmission Date: 20230722
  Serious: Yes (Death)
  Sender: FDA-Public Use
  Company Number: US-PFIZER INC-202300172002

PATIENT
  Age: 45 Year
  Sex: Male

DRUGS (8)
  1. LIDOCAINE HYDROCHLORIDE [Suspect]
     Active Substance: LIDOCAINE HYDROCHLORIDE
     Dosage: UNK
  2. FENTANYL CITRATE [Suspect]
     Active Substance: FENTANYL CITRATE
     Dosage: UNK
  3. OXYCODONE [Suspect]
     Active Substance: OXYCODONE
     Dosage: UNK
  4. COCAINE [Suspect]
     Active Substance: COCAINE
     Dosage: UNK
  5. BENZOYLECGONINE [Suspect]
     Active Substance: BENZOYLECGONINE
     Dosage: UNK
  6. NOSCAPINE [Suspect]
     Active Substance: NOSCAPINE
     Dosage: UNK
  7. LEVAMISOLE [Suspect]
     Active Substance: LEVAMISOLE
     Dosage: UNK
  8. OXYCODONE [Suspect]
     Active Substance: OXYCODONE

REACTIONS (2)
  - Toxicity to various agents [Fatal]
  - Overdose [Fatal]
